FAERS Safety Report 10069799 (Version 1)
Quarter: 2014Q2

REPORT INFORMATION
  Report Type: Spontaneous
  Country: US (occurrence: US)
  Receive Date: 20140410
  Receipt Date: 20140410
  Transmission Date: 20141212
  Serious: No
  Sender: FDA-Public Use
  Company Number: US-PFIZER INC-2014097688

PATIENT
  Sex: Male

DRUGS (6)
  1. LYRICA [Suspect]
     Dosage: UNK
  2. EFFEXOR XR [Suspect]
     Dosage: UNK
  3. PROTONIX [Suspect]
     Dosage: UNK
  4. LIPITOR [Suspect]
     Dosage: UNK
  5. NORPACE [Suspect]
     Dosage: UNK
  6. CELEBREX [Suspect]
     Dosage: UNK

REACTIONS (1)
  - Rash erythematous [Unknown]
